FAERS Safety Report 8154467-6 (Version None)
Quarter: 2012Q1

REPORT INFORMATION
  Report Type: 
  Country: None (occurrence: None)
  Receive Date: 20120221
  Receipt Date: 20120214
  Transmission Date: 20120608
  Serious: Yes (Other)
  Sender: FDA-Public Use
  Company Number: CA-B.I. PHARMACEUTICALS,INC./RIDGEFIELD-2012-CN-00364CN

PATIENT
  Sex: Female
  Weight: 58.97 kg

DRUGS (3)
  1. DIGOXIN [Concomitant]
     Route: 065
  2. PRADAXA [Suspect]
     Dosage: 220 MG
     Route: 065
  3. BISOPROLOL FUMARATE [Concomitant]
     Route: 065

REACTIONS (5)
  - GASTROOESOPHAGEAL REFLUX DISEASE [None]
  - OESOPHAGEAL PAIN [None]
  - BLOOD PRESSURE INCREASED [None]
  - DYSPHAGIA [None]
  - APHAGIA [None]
